FAERS Safety Report 5854174-6 (Version None)
Quarter: 2008Q3

REPORT INFORMATION
  Report Type: 
  Country: None (occurrence: None)
  Receive Date: 20080822
  Receipt Date: 20080814
  Transmission Date: 20090109
  Serious: Yes (Other)
  Sender: FDA-Public Use
  Company Number: US-JNJCH-2008021432

PATIENT
  Age: 84 Year
  Sex: Female
  Weight: 67.1 kg

DRUGS (2)
  1. VISINE-A [Suspect]
     Indication: EYE IRRITATION
     Dosage: TEXT:ONE DROP ONCE DAILY
     Route: 047
     Dates: start: 20080813, end: 20080813
  2. ANTIHYPERTENSIVES [Concomitant]
     Indication: HYPERTENSION
     Dosage: TEXT:UNSPECIFIED
     Route: 065

REACTIONS (1)
  - APPLICATION SITE BURN [None]
